FAERS Safety Report 8983760 (Version 4)
Quarter: 2013Q1

REPORT INFORMATION
  Report Type: Report from Study
  Country: JP (occurrence: JP)
  Receive Date: 20121224
  Receipt Date: 20130307
  Transmission Date: 20140127
  Serious: Yes (Hospitalization)
  Sender: FDA-Public Use
  Company Number: JP-ROCHE-1168484

PATIENT
  Age: 63 Year
  Sex: Female
  Weight: 39.15 kg

DRUGS (6)
  1. CAPECITABINE [Suspect]
     Indication: GASTRIC CANCER
     Route: 048
     Dates: start: 20121129, end: 20121205
  2. ELPLAT [Suspect]
     Indication: GASTRIC CANCER
     Route: 042
     Dates: start: 20121129, end: 20121129
  3. BERIZYM [Concomitant]
     Indication: NAUSEA
     Route: 048
     Dates: start: 20121206, end: 20121211
  4. GASMOTIN [Concomitant]
     Indication: NAUSEA
     Route: 048
     Dates: start: 20121206, end: 20121211
  5. LOPEMIN [Concomitant]
     Indication: DIARRHOEA
     Route: 048
     Dates: start: 20121206, end: 20121211
  6. NAUZELIN [Concomitant]
     Indication: NAUSEA
     Route: 048
     Dates: start: 20121206, end: 20121211

REACTIONS (2)
  - Drug-induced liver injury [Recovered/Resolved]
  - Bacteraemia [Recovered/Resolved]
